FAERS Safety Report 5492193-2 (Version None)
Quarter: 2007Q4

REPORT INFORMATION
  Report Type: 
  Country: None (occurrence: None)
  Receive Date: 20071022
  Receipt Date: 20071010
  Transmission Date: 20080405
  Serious: Yes (Disabling)
  Sender: FDA-Public Use
  Company Number: NO-ROCHE-326146

PATIENT
  Age: 31 Year
  Sex: Female

DRUGS (2)
  1. ROACCUTANE [Suspect]
     Dosage: DOSAGE REGIMEN OF 40 OR 60 MG/DAY
     Route: 048
     Dates: start: 20020128, end: 20020620
  2. YASMIN [Concomitant]
     Indication: ORAL CONTRACEPTION
     Route: 048

REACTIONS (8)
  - ASTHENIA [None]
  - CEREBROVASCULAR DISORDER [None]
  - DRY EYE [None]
  - DRY MOUTH [None]
  - HEADACHE [None]
  - MUSCULOSKELETAL PAIN [None]
  - MUSCULOSKELETAL STIFFNESS [None]
  - TENDONITIS [None]
